FAERS Safety Report 8229586-6 (Version None)
Quarter: 2012Q1

REPORT INFORMATION
  Report Type: 
  Country: None (occurrence: None)
  Receive Date: 20120322
  Receipt Date: 20120315
  Transmission Date: 20120608
  Serious: Yes (Other)
  Sender: FDA-Public Use
  Company Number: NL-ROCHE-1005418

PATIENT
  Sex: Female
  Weight: 84.7 kg

DRUGS (7)
  1. PEGINTERFERON ALFA-2A [Suspect]
     Route: 058
     Dates: start: 20120312
  2. PEGINTERFERON ALFA-2A [Suspect]
     Indication: HEPATITIS C
     Route: 058
     Dates: start: 20110919, end: 20120305
  3. DEPAKENE [Concomitant]
     Dates: start: 20100101
  4. SEROQUEL [Concomitant]
     Dates: start: 20100101
  5. COPEGUS [Suspect]
     Indication: HEPATITIS C
     Dosage: DATE OF LAST DOSE PRIOR TO SAE- 03-OCT-2011
     Route: 048
     Dates: start: 20110919
  6. NEORECORMON [Suspect]
     Indication: HEPATITIS C
     Dosage: DOSE : 30,000 IU/ML
     Route: 058
     Dates: start: 20111103
  7. CITALOPRAM HYDROBROMIDE [Concomitant]
     Dates: start: 20100101

REACTIONS (1)
  - PANCYTOPENIA [None]
